FAERS Safety Report 11409149 (Version 1)
Quarter: 2015Q3

REPORT INFORMATION
  Report Type: Report from Study
  Country: UA (occurrence: UA)
  Receive Date: 20150824
  Receipt Date: 20150824
  Transmission Date: 20151125
  Serious: Yes (Hospitalization)
  Sender: FDA-Public Use
  Company Number: UA-ASTRAZENECA-2015SE79864

PATIENT
  Age: 22716 Day
  Sex: Male

DRUGS (8)
  1. ASA [Concomitant]
     Active Substance: ASPIRIN
     Indication: CARDIOVASCULAR EVENT PROPHYLAXIS
     Route: 048
  2. ATORIS [Concomitant]
     Active Substance: ATORVASTATIN CALCIUM
     Indication: DYSLIPIDAEMIA
     Route: 048
  3. CORVASAN [Concomitant]
     Indication: HYPERTENSION
     Route: 048
  4. BRILINTA [Suspect]
     Active Substance: TICAGRELOR
     Indication: CARDIOVASCULAR EVENT PROPHYLAXIS
     Route: 048
     Dates: start: 20150521, end: 20150812
  5. GILBOMET [Concomitant]
     Indication: TYPE 2 DIABETES MELLITUS
     Route: 048
  6. DIOCOR SOLO [Concomitant]
     Indication: HYPERTENSION
     Route: 048
  7. DIFORS 160 [Concomitant]
     Indication: HYPERTENSION
     Route: 048
  8. ISOKET [Concomitant]
     Active Substance: ISOSORBIDE DINITRATE
     Indication: MYOCARDIAL ISCHAEMIA
     Dosage: AS REQUIRED
     Route: 055

REACTIONS (1)
  - Angina pectoris [Recovered/Resolved]

NARRATIVE: CASE EVENT DATE: 20150812
